FAERS Safety Report 23628481 (Version 3)
Quarter: 2024Q4

REPORT INFORMATION
  Report Type: Spontaneous
  Country: FR (occurrence: FR)
  Receive Date: 20240313
  Receipt Date: 20241108
  Transmission Date: 20250115
  Serious: Yes (Hospitalization)
  Sender: SANDOZ
  Company Number: None

PATIENT
  Age: 33 Year
  Sex: Female
  Weight: 90 kg

DRUGS (25)
  1. BACTRIM [Suspect]
     Active Substance: SULFAMETHOXAZOLE\TRIMETHOPRIM
     Indication: Systemic lupus erythematosus
     Dosage: 1.000DF QD
     Route: 048
     Dates: start: 20230426, end: 20231011
  2. CELLCEPT [Suspect]
     Active Substance: MYCOPHENOLATE MOFETIL
     Indication: Systemic lupus erythematosus
     Dosage: 1G-500MG-1G
     Route: 048
     Dates: start: 202103, end: 20231011
  3. OBINUTUZUMAB [Suspect]
     Active Substance: OBINUTUZUMAB
     Indication: Systemic lupus erythematosus
     Dosage: 1000.000MG
     Route: 042
     Dates: start: 20230426, end: 20230426
  4. OBINUTUZUMAB [Suspect]
     Active Substance: OBINUTUZUMAB
     Dosage: 1000.000MG
     Route: 042
     Dates: start: 20230516, end: 20230516
  5. IBUPROFEN [Suspect]
     Active Substance: IBUPROFEN
     Indication: Headache
     Dosage: 400 MG X3/J
     Route: 048
     Dates: start: 20230930, end: 20231005
  6. IBUPROFEN [Suspect]
     Active Substance: IBUPROFEN
     Dosage: 400 MG
     Route: 048
     Dates: start: 20230930, end: 20231005
  7. MYCOPHENOLATE MOFETIL [Suspect]
     Active Substance: MYCOPHENOLATE MOFETIL
     Indication: Lupus nephritis
     Dosage: 1G-500MG-1G
     Route: 048
     Dates: start: 202103, end: 20231011
  8. MYCOPHENOLATE MOFETIL [Suspect]
     Active Substance: MYCOPHENOLATE MOFETIL
     Indication: Systemic lupus erythematosus
     Dosage: 1000 MG IN THE MORNING, 500 MG AT NOON AND 1000 MG IN THE EVENING
     Route: 048
     Dates: start: 20210408, end: 20231011
  9. METHYLPREDNISOLONE [Suspect]
     Active Substance: METHYLPREDNISOLONE
     Indication: Product used for unknown indication
     Dosage: 500 MG
     Route: 042
     Dates: start: 20230426, end: 20230427
  10. METHYLPREDNISOLONE [Suspect]
     Active Substance: METHYLPREDNISOLONE
     Dosage: 500 MG
     Route: 043
     Dates: start: 20230427, end: 20230427
  11. OBINUTUZUMAB [Suspect]
     Active Substance: OBINUTUZUMAB
     Indication: Systemic lupus erythematosus
     Dosage: 1000 MG
     Route: 042
     Dates: start: 20230426, end: 20230516
  12. OBINUTUZUMAB [Suspect]
     Active Substance: OBINUTUZUMAB
     Indication: Lupus nephritis
  13. SOLU-MEDROL [Suspect]
     Active Substance: METHYLPREDNISOLONE SODIUM SUCCINATE
     Indication: Product used for unknown indication
     Dosage: 500 MG
     Route: 042
     Dates: start: 20230516, end: 20230516
  14. SULFAMETHOXAZOLE\TRIMETHOPRIM [Suspect]
     Active Substance: SULFAMETHOXAZOLE\TRIMETHOPRIM
     Indication: Systemic lupus erythematosus
     Dosage: 1 DF, QD
     Route: 048
     Dates: start: 20230426, end: 20231011
  15. SULFAMETHOXAZOLE\TRIMETHOPRIM [Suspect]
     Active Substance: SULFAMETHOXAZOLE\TRIMETHOPRIM
     Indication: Neutropenia
  16. CALTRATE [Concomitant]
     Active Substance: CALCIUM CARBONATE
     Indication: Osteoporosis
     Dosage: UNK
     Route: 065
     Dates: start: 20200316
  17. DOLIPRANE [Concomitant]
     Active Substance: ACETAMINOPHEN
     Indication: Headache
     Dosage: 4.000G
     Route: 065
     Dates: start: 20140205
  18. EUPANTOL [Concomitant]
     Active Substance: PANTOPRAZOLE SODIUM
     Indication: Product used for unknown indication
     Dosage: 20.000MG
     Route: 065
     Dates: start: 20160125, end: 20231011
  19. LOVENOX [Concomitant]
     Active Substance: ENOXAPARIN SODIUM
     Indication: Product used for unknown indication
     Dosage: 4000 IU
     Route: 065
     Dates: start: 20231013, end: 20231017
  20. PLAQUENIL [Concomitant]
     Active Substance: HYDROXYCHLOROQUINE SULFATE
     Indication: Product used for unknown indication
     Dosage: 2 TABLETS IN THE EVENING
     Route: 065
     Dates: start: 20200128
  21. PREDNISONE [Concomitant]
     Active Substance: PREDNISONE
     Indication: Product used for unknown indication
     Dosage: 5.000MG
     Route: 065
     Dates: start: 20210719
  22. Renitec [Concomitant]
     Indication: Systemic lupus erythematosus
     Dosage: 20.000MG QD
     Route: 065
     Dates: start: 20210408
  23. Spasfon [Concomitant]
     Indication: Abdominal pain
     Dosage: UNK
     Route: 065
     Dates: start: 20200724
  24. SYMBICORT [Concomitant]
     Active Substance: BUDESONIDE\FORMOTEROL FUMARATE DIHYDRATE
     Indication: Product used for unknown indication
     Dosage: 200.000IU
     Route: 065
     Dates: start: 20131119
  25. LEVOFLOXACIN [Concomitant]
     Active Substance: LEVOFLOXACIN
     Indication: Sinusitis
     Dosage: 500.000MG
     Route: 065
     Dates: start: 20231006, end: 20231011

REACTIONS (3)
  - Agranulocytosis [Recovered/Resolved]
  - Pyrexia [Recovered/Resolved]
  - Off label use [Unknown]

NARRATIVE: CASE EVENT DATE: 20230426
